FAERS Safety Report 18860609 (Version 1)
Quarter: 2021Q1

REPORT INFORMATION
  Report Type: Report from Study
  Country: PK (occurrence: PK)
  Receive Date: 20210208
  Receipt Date: 20210208
  Transmission Date: 20210420
  Serious: Yes (Death, Other)
  Sender: FDA-Public Use
  Company Number: PK-PFIZER INC-2021116195

PATIENT

DRUGS (11)
  1. DAUNORUBICIN [Suspect]
     Active Substance: DAUNORUBICIN
     Indication: ACUTE PROMYELOCYTIC LEUKAEMIA
     Dosage: 42 MG/M2, CYCLIC (OVER 15 MIN IV; DAYS 2, 4, 6, 8)
     Route: 042
  2. ALL?TRANS RETINOIC ACID [Suspect]
     Active Substance: TRETINOIN
     Indication: ACUTE PROMYELOCYTIC LEUKAEMIA
     Dosage: 45 MG/M2, DAILY (Q 12 H PO; DAYS 1?36)
     Route: 048
  3. ARSENIC TRIOXIDE. [Suspect]
     Active Substance: ARSENIC TRIOXIDE
     Dosage: 0.15 MG/KG, DAILY (OVER 2 H IV; DAYS 1?28)
     Route: 042
  4. ALL?TRANS RETINOIC ACID [Suspect]
     Active Substance: TRETINOIN
     Dosage: 45 MG/M2, DAILY (Q 12 H PO; DAYS 1?28)
     Route: 048
  5. ALL?TRANS RETINOIC ACID [Suspect]
     Active Substance: TRETINOIN
     Dosage: 45 MG/M2, DAILY (Q 12 H PO; DAYS 1?7, 15?21, 29?35)
     Route: 048
  6. PREDNISOLONE. [Suspect]
     Active Substance: PREDNISOLONE
     Indication: ACUTE PROMYELOCYTIC LEUKAEMIA
     Dosage: 1 MG/KG, DAILY (Q 8 H PO; DAYS 1?10)
     Route: 048
  7. METHOTREXATE SODIUM. [Suspect]
     Active Substance: METHOTREXATE SODIUM
     Indication: ACUTE PROMYELOCYTIC LEUKAEMIA
     Dosage: 15 MG/M2, DAILY (Q WEEKLY PO; DAYS 15?90)
     Route: 048
  8. ALL?TRANS RETINOIC ACID [Suspect]
     Active Substance: TRETINOIN
     Dosage: 45 MG/M2, DAILY (Q 12 H PO; DAYS 1?14)
     Route: 048
  9. ARSENIC TRIOXIDE. [Suspect]
     Active Substance: ARSENIC TRIOXIDE
     Dosage: 0.15 MG/KG, DAILY (OVER 2 H IV; DAYS 1?5, 8?12, 15?19, 22?26, 29?33)
     Route: 042
  10. 6?MERCAPTOPURINE MONOHYDRATE [Suspect]
     Active Substance: MERCAPTOPURINE
     Indication: ACUTE PROMYELOCYTIC LEUKAEMIA
     Dosage: 50 MG/M2, 1X/DAY (Q 24 H PO; DAYS 15?90)
     Route: 048
  11. ARSENIC TRIOXIDE. [Suspect]
     Active Substance: ARSENIC TRIOXIDE
     Indication: ACUTE PROMYELOCYTIC LEUKAEMIA
     Dosage: 0.15 MG/KG, DAILY (OVER 2 H IV; DAYS 9?36)
     Route: 042

REACTIONS (1)
  - Gastrointestinal haemorrhage [Fatal]
